FAERS Safety Report 7744759-4 (Version None)
Quarter: 2011Q3

REPORT INFORMATION
  Report Type: 
  Country: None (occurrence: None)
  Receive Date: 20110912
  Receipt Date: 20110912
  Transmission Date: 20111222
  Serious: No
  Sender: FDA-Public Use
  Company Number: None

PATIENT
  Sex: Female
  Weight: 60 kg

DRUGS (7)
  1. CALCIUM CARBONATE [Concomitant]
     Route: 048
  2. BENADRYL [Concomitant]
     Route: 048
  3. CIPROFLOXACIN [Concomitant]
     Route: 048
  4. FISH OIL [Concomitant]
     Route: 048
  5. LORTAB [Concomitant]
     Route: 048
  6. VANCOMYCIN [Suspect]
     Indication: WOUND INFECTION STAPHYLOCOCCAL
     Dosage: 1GRAM
     Route: 042
     Dates: start: 20110810, end: 20110905
  7. MUTLIPLE VITAMIN [Concomitant]
     Route: 048

REACTIONS (8)
  - WHITE BLOOD CELL COUNT DECREASED [None]
  - HEADACHE [None]
  - ALANINE AMINOTRANSFERASE INCREASED [None]
  - RASH GENERALISED [None]
  - ASPARTATE AMINOTRANSFERASE INCREASED [None]
  - BLOOD ALKALINE PHOSPHATASE INCREASED [None]
  - DIARRHOEA [None]
  - PLATELET COUNT DECREASED [None]
